FAERS Safety Report 6828159-7 (Version None)
Quarter: 2010Q3

REPORT INFORMATION
  Report Type: 
  Country: None (occurrence: None)
  Receive Date: 20100708
  Receipt Date: 20100708
  Transmission Date: 20110219
  Serious: No
  Sender: FDA-Public Use
  Company Number: None

PATIENT
  Age: 5 Year
  Sex: Female
  Weight: 31.7518 kg

DRUGS (1)
  1. TENEX [Suspect]
     Dosage: 5 MG DAILY PO
     Route: 048
     Dates: start: 20091119, end: 20100611

REACTIONS (7)
  - FATIGUE [None]
  - HYPERPHAGIA [None]
  - LETHARGY [None]
  - MOVEMENT DISORDER [None]
  - PRURITUS [None]
  - THIRST [None]
  - WEIGHT INCREASED [None]
